FAERS Safety Report 18778472 (Version 1)
Quarter: 2021Q1

REPORT INFORMATION
  Report Type: Spontaneous
  Country: IT (occurrence: IT)
  Receive Date: 20210123
  Receipt Date: 20210123
  Transmission Date: 20210419
  Serious: Yes (Other)
  Sender: FDA-Public Use
  Company Number: IT-TEVA-2021-IT-1870326

PATIENT
  Age: 86 Year
  Sex: Male

DRUGS (1)
  1. RYTMONORM 325MG [Suspect]
     Active Substance: PROPAFENONE
     Route: 065
     Dates: start: 201309

REACTIONS (3)
  - Intestinal obstruction [Unknown]
  - Dyschezia [Not Recovered/Not Resolved]
  - Hyponatraemia [Unknown]
